FAERS Safety Report 8171814-X (Version None)
Quarter: 2012Q1

REPORT INFORMATION
  Report Type: 
  Country: None (occurrence: None)
  Receive Date: 20120228
  Receipt Date: 20120220
  Transmission Date: 20120608
  Serious: Yes (Other)
  Sender: FDA-Public Use
  Company Number: JP-GLAXOSMITHKLINE-B0783721A

PATIENT
  Age: 75 Year
  Sex: Male

DRUGS (1)
  1. PAXIL [Suspect]
     Indication: DEPRESSIVE SYMPTOM
     Dosage: 40MG PER DAY
     Route: 048
     Dates: start: 20110101

REACTIONS (2)
  - VERBAL ABUSE [None]
  - SEXUAL ABUSE [None]
